FAERS Safety Report 13752327 (Version 2)
Quarter: 2019Q4

REPORT INFORMATION
  Report Type: Spontaneous
  Country: US (occurrence: US)
  Receive Date: 20170713
  Receipt Date: 20191217
  Transmission Date: 20200122
  Serious: No
  Sender: FDA-Public Use
  Company Number: US-JAZZ-2017-US-006659

PATIENT
  Sex: Female

DRUGS (32)
  1. TOCOPHEROL [Concomitant]
     Active Substance: TOCOPHEROL
  2. CALCIUM + VIT D [Concomitant]
     Active Substance: CALCIUM\VITAMIN D
  3. SULINDAC. [Concomitant]
     Active Substance: SULINDAC
  4. ZANTAC [Concomitant]
     Active Substance: RANITIDINE HYDROCHLORIDE
  5. XYREM [Suspect]
     Active Substance: SODIUM OXYBATE
     Dosage: 4G, BID
     Route: 048
     Dates: start: 201111
  6. DHEA [Concomitant]
     Active Substance: PRASTERONE
  7. ARMOUR THYROID [Concomitant]
     Active Substance: THYROID, PORCINE
  8. SUMATRIPTAN. [Concomitant]
     Active Substance: SUMATRIPTAN
  9. NASONEX [Concomitant]
     Active Substance: MOMETASONE FUROATE
  10. PATANASE [Concomitant]
     Active Substance: OLOPATADINE HYDROCHLORIDE
  11. SYNTHROID [Concomitant]
     Active Substance: LEVOTHYROXINE SODIUM
  12. CYCLOBENZAPRINE HYDROCHLORIDE. [Concomitant]
     Active Substance: CYCLOBENZAPRINE HYDROCHLORIDE
  13. FISH OIL CONCENTRATE [Concomitant]
     Active Substance: FISH OIL
  14. PHENYLALANINE, DL- [Concomitant]
     Active Substance: PHENYLALANINE, DL-
  15. POTASSIUM ACETATE. [Concomitant]
     Active Substance: POTASSIUM ACETATE
  16. XYREM [Suspect]
     Active Substance: SODIUM OXYBATE
     Indication: NARCOLEPSY
     Dosage: 2.25G, BID
     Route: 048
     Dates: start: 201101, end: 201102
  17. MOMETASONE FUROATE. [Concomitant]
     Active Substance: MOMETASONE FUROATE
  18. GINKGO BILOBA [Concomitant]
     Active Substance: GINKGO
  19. LEVOCARNITINE. [Concomitant]
     Active Substance: LEVOCARNITINE
  20. SILYBUM MARIANUM [Concomitant]
     Active Substance: DIETARY SUPPLEMENT\HERBALS\MILK THISTLE
  21. RESVERATROL [Concomitant]
     Active Substance: DIETARY SUPPLEMENT\RESVERATROL
  22. VIT D [Concomitant]
     Active Substance: VITAMIN D NOS
  23. WELLBUTRIN [Concomitant]
     Active Substance: BUPROPION HYDROCHLORIDE
  24. XYREM [Suspect]
     Active Substance: SODIUM OXYBATE
     Dosage: DOSE ADJUSTMENT
     Route: 048
     Dates: start: 201102, end: 201111
  25. ONDANSETRON [Concomitant]
     Active Substance: ONDANSETRON
  26. LEVOTHYROXINE. [Concomitant]
     Active Substance: LEVOTHYROXINE
  27. FLUCONAZOLE. [Concomitant]
     Active Substance: FLUCONAZOLE
  28. CYTOMEL [Concomitant]
     Active Substance: LIOTHYRONINE SODIUM
  29. ALPHA LIPOIC ACID [Concomitant]
     Active Substance: .ALPHA.-LIPOIC ACID
  30. ZINC ACETATE [Concomitant]
     Active Substance: ZINC ACETATE
  31. MAGNESIUM CARBONAT [Concomitant]
  32. VITAMIN C [Concomitant]
     Active Substance: ASCORBIC ACID

REACTIONS (1)
  - Cough [Unknown]
